FAERS Safety Report 23406922 (Version 1)
Quarter: 2024Q1

REPORT INFORMATION
  Report Type: Spontaneous
  Country: US (occurrence: US)
  Receive Date: 20240116
  Receipt Date: 20240116
  Transmission Date: 20240410
  Serious: No
  Sender: FDA-Public Use
  Company Number: US-SANDOZ-SDZ2024US004331

PATIENT
  Sex: Female

DRUGS (1)
  1. POLYMYXIN B SULFATE\TRIMETHOPRIM [Suspect]
     Active Substance: POLYMYXIN B SULFATE\TRIMETHOPRIM
     Indication: Product used for unknown indication
     Dosage: 1%/ POLYMYXIN B 10ML LDP
     Route: 065
     Dates: start: 20240109, end: 20240109

REACTIONS (3)
  - Visual impairment [Not Recovered/Not Resolved]
  - Eye swelling [Unknown]
  - Ocular hyperaemia [Unknown]
